FAERS Safety Report 6426775-8 (Version None)
Quarter: 2009Q4

REPORT INFORMATION
  Report Type: 
  Country: None (occurrence: None)
  Receive Date: 20091103
  Receipt Date: 20091103
  Transmission Date: 20100525
  Serious: Yes (Hospitalization)
  Sender: FDA-Public Use
  Company Number: None

PATIENT
  Age: 63 Year
  Sex: Male
  Weight: 127.6 kg

DRUGS (1)
  1. NIACIN [Suspect]
     Indication: HYPERLIPIDAEMIA
     Dosage: 500MG AT BEDTIME PO
     Route: 048
     Dates: start: 20090420, end: 20090511

REACTIONS (2)
  - ACUTE RESPIRATORY DISTRESS SYNDROME [None]
  - ANAPHYLACTIC REACTION [None]
